FAERS Safety Report 5628702-X (Version None)
Quarter: 2008Q1

REPORT INFORMATION
  Report Type: 
  Country: None (occurrence: None)
  Receive Date: 20080215
  Receipt Date: 20080204
  Transmission Date: 20080703
  Serious: Yes (Other)
  Sender: FDA-Public Use
  Company Number: US-PFIZER INC-2008012400

PATIENT
  Sex: Female
  Weight: 61.2 kg

DRUGS (4)
  1. LYRICA [Suspect]
     Indication: BACK PAIN
  2. METHADONE HCL [Concomitant]
  3. NORCO [Concomitant]
  4. PROTONIX [Concomitant]

REACTIONS (2)
  - ACTIVITIES OF DAILY LIVING IMPAIRED [None]
  - PAIN IN EXTREMITY [None]
